FAERS Safety Report 17214972 (Version 1)
Quarter: 2020Q1

REPORT INFORMATION
  Report Type: Spontaneous
  Country: US (occurrence: US)
  Receive Date: 20191227
  Receipt Date: 20191227
  Transmission Date: 20200409
  Serious: Yes (Other)
  Sender: FDA-Public Use
  Company Number: None

PATIENT
  Age: 16 Year
  Sex: Female

DRUGS (1)
  1. 100% TCA [Suspect]
     Active Substance: TRICHLOROACETIC ACID
     Indication: TATTOO
     Dates: start: 20191119

REACTIONS (2)
  - Keloid scar [None]
  - Blister [None]
